FAERS Safety Report 24044061 (Version 1)
Quarter: 2024Q3

REPORT INFORMATION
  Report Type: Spontaneous
  Country: SE (occurrence: SE)
  Receive Date: 20240703
  Receipt Date: 20240703
  Transmission Date: 20241017
  Serious: Yes (Other)
  Sender: TEVA
  Company Number: None

PATIENT
  Age: 23 Year
  Sex: Female
  Weight: 55 kg

DRUGS (1)
  1. ISOTRETINOIN [Suspect]
     Active Substance: ISOTRETINOIN
     Indication: Acne
     Dosage: 2 TABLETS/DAY, ISOTRETINOIN ACTAVIS
     Route: 048
     Dates: start: 20220916, end: 20230529

REACTIONS (5)
  - Depressed mood [Recovered/Resolved]
  - Vulvovaginal dryness [Not Recovered/Not Resolved]
  - Hand dermatitis [Recovering/Resolving]
  - Dry skin [Recovered/Resolved]
  - Herpes virus infection [Recovered/Resolved]

NARRATIVE: CASE EVENT DATE: 20220101
